FAERS Safety Report 9869918 (Version 1)
Quarter: 2014Q1

REPORT INFORMATION
  Report Type: Spontaneous
  Country: US (occurrence: US)
  Receive Date: 20140205
  Receipt Date: 20140205
  Transmission Date: 20141002
  Serious: No
  Sender: FDA-Public Use
  Company Number: US-009507513-1401USA013123

PATIENT
  Age: 75 Year
  Sex: Female

DRUGS (1)
  1. ASMANEX TWISTHALER [Suspect]
     Indication: ASTHMA
     Dosage: 1 PUFF TWICE A DAY
     Route: 055

REACTIONS (2)
  - Dyspnoea [Recovering/Resolving]
  - Product quality issue [Unknown]
